FAERS Safety Report 16208177 (Version 1)
Quarter: 2019Q2

REPORT INFORMATION
  Report Type: Spontaneous
  Country: CA (occurrence: CA)
  Receive Date: 20190417
  Receipt Date: 20190417
  Transmission Date: 20190711
  Serious: Yes (Other)
  Sender: FDA-Public Use
  Company Number: CA-BAYER-2019-076751

PATIENT
  Age: 29 Year
  Sex: Female
  Weight: 55.33 kg

DRUGS (1)
  1. YASMIN [Suspect]
     Active Substance: DROSPIRENONE\ETHINYL ESTRADIOL
     Indication: CONTRACEPTION
     Dosage: 1 DF, CONT
     Route: 048

REACTIONS (4)
  - Precancerous cells present [Recovering/Resolving]
  - Night sweats [Recovering/Resolving]
  - Ovarian operation [Recovering/Resolving]
  - Cervix disorder [Recovering/Resolving]
